FAERS Safety Report 16248431 (Version 1)
Quarter: 2019Q2

REPORT INFORMATION
  Report Type: Spontaneous
  Country: NL (occurrence: NL)
  Receive Date: 20190429
  Receipt Date: 20190429
  Transmission Date: 20190711
  Serious: Yes (Hospitalization)
  Sender: FDA-Public Use
  Company Number: NL-IMPAX LABORATORIES, LLC-2019-IPXL-00889

PATIENT
  Age: 36 Year
  Sex: Female

DRUGS (1)
  1. MINOCYCLINE HYDROCHLORIDE. [Suspect]
     Active Substance: MINOCYCLINE HYDROCHLORIDE
     Indication: ACNE CYSTIC
     Dosage: UNK
     Route: 048

REACTIONS (3)
  - Cardiac failure [Unknown]
  - Cerebrovascular accident [Unknown]
  - Eosinophilic myocarditis [Recovered/Resolved]
